FAERS Safety Report 4553939-0 (Version None)
Quarter: 2005Q1

REPORT INFORMATION
  Report Type: 
  Country: None (occurrence: None)
  Receive Date: 20050113
  Receipt Date: 20050113
  Transmission Date: 20050727
  Serious: Yes (Other)
  Sender: FDA-Public Use
  Company Number: None

PATIENT
  Sex: Male
  Weight: 81.6475 kg

DRUGS (2)
  1. ZOCOR [Suspect]
     Indication: BLOOD CHOLESTEROL INCREASED
     Dosage: 1 4 DAY
     Dates: start: 19990101, end: 20030101
  2. BAYCOL [Suspect]
     Indication: BLOOD CHOLESTEROL INCREASED
     Dosage: 1 A DAY

REACTIONS (6)
  - ANAL SPHINCTER ATONY [None]
  - ATONIC URINARY BLADDER [None]
  - BLADDER DISORDER [None]
  - BUNDLE BRANCH BLOCK LEFT [None]
  - DENERVATION ATROPHY [None]
  - INTESTINAL FUNCTIONAL DISORDER [None]
